FAERS Safety Report 9802193 (Version 18)
Quarter: 2015Q2

REPORT INFORMATION
  Report Type: Spontaneous
  Country: GB (occurrence: GB)
  Receive Date: 20140107
  Receipt Date: 20150604
  Transmission Date: 20150821
  Serious: Yes (Life-Threatening, Hospitalization, Disabling, Congenital Anomaly, Other)
  Sender: FDA-Public Use
  Company Number: GB-ABBVIE-09P-167-0601148-00

PATIENT
  Sex: Female
  Weight: 2.2 kg

DRUGS (10)
  1. NORVIR [Suspect]
     Active Substance: RITONAVIR
     Indication: MATERNAL EXPOSURE TIMING UNSPECIFIED
     Route: 064
  2. INTELENCE [Suspect]
     Active Substance: ETRAVIRINE
     Indication: MATERNAL EXPOSURE TIMING UNSPECIFIED
     Dosage: INTRA-UTERINE
     Route: 064
  3. INTELENCE [Suspect]
     Active Substance: ETRAVIRINE
     Route: 064
     Dates: start: 20081023
  4. PREZISTA [Suspect]
     Active Substance: DARUNAVIR ETHANOLATE
     Indication: MATERNAL EXPOSURE TIMING UNSPECIFIED
     Dosage: INTRA-UTERINE, PARENT ROUTE -ORAL
     Route: 064
  5. APTIVUS [Suspect]
     Active Substance: TIPRANAVIR
     Indication: MATERNAL EXPOSURE TIMING UNSPECIFIED
     Route: 064
  6. RALTEGRAVIR [Suspect]
     Active Substance: RALTEGRAVIR
     Indication: MATERNAL EXPOSURE TIMING UNSPECIFIED
     Route: 064
  7. TIPRANAVIR [Suspect]
     Active Substance: TIPRANAVIR
     Indication: MATERNAL EXPOSURE TIMING UNSPECIFIED
     Route: 064
  8. TRUVADA [Suspect]
     Active Substance: EMTRICITABINE\TENOFOVIR DISOPROXIL FUMARATE
     Indication: MATERNAL EXPOSURE TIMING UNSPECIFIED
     Route: 064
  9. ISENTRESS [Suspect]
     Active Substance: RALTEGRAVIR POTASSIUM
     Indication: MATERNAL EXPOSURE TIMING UNSPECIFIED
     Route: 064
  10. ETRAVIRINE [Suspect]
     Active Substance: ETRAVIRINE
     Indication: MATERNAL EXPOSURE TIMING UNSPECIFIED
     Route: 064

REACTIONS (29)
  - Meningomyelocele [Recovered/Resolved with Sequelae]
  - Musculoskeletal deformity [Recovered/Resolved]
  - Caudal regression syndrome [Recovered/Resolved with Sequelae]
  - Erythema [Unknown]
  - Congenital genital malformation [Unknown]
  - Sepsis [Recovered/Resolved]
  - Premature baby [Recovered/Resolved]
  - Gastrointestinal disorder congenital [Unknown]
  - Erythema [Recovered/Resolved]
  - Gastrointestinal malformation [Not Recovered/Not Resolved]
  - Cloacal exstrophy [Recovered/Resolved with Sequelae]
  - Umbilical cord abnormality [Recovered/Resolved with Sequelae]
  - Anal atresia [Recovered/Resolved with Sequelae]
  - Lipodystrophy acquired [Unknown]
  - Genitalia external ambiguous [Recovered/Resolved with Sequelae]
  - Congenital anomaly [Unknown]
  - Blood iron decreased [Recovered/Resolved]
  - Spina bifida [Unknown]
  - Congenital genital malformation [Recovered/Resolved with Sequelae]
  - Bladder agenesis [Recovered/Resolved with Sequelae]
  - Caudal regression syndrome [Not Recovered/Not Resolved]
  - Meconium stain [Recovered/Resolved with Sequelae]
  - Congenital musculoskeletal anomaly [Recovered/Resolved with Sequelae]
  - Tethered cord syndrome [Recovered/Resolved with Sequelae]
  - Spine malformation [Recovered/Resolved with Sequelae]
  - Feeding disorder neonatal [Unknown]
  - Exomphalos [Recovered/Resolved with Sequelae]
  - Musculoskeletal pain [Unknown]
  - Foetal exposure during pregnancy [Unknown]

NARRATIVE: CASE EVENT DATE: 20090221
